FAERS Safety Report 4899266-3 (Version None)
Quarter: 2006Q1

REPORT INFORMATION
  Report Type: 
  Country: None (occurrence: None)
  Receive Date: 20060202
  Receipt Date: 20060126
  Transmission Date: 20060701
  Serious: Yes (Hospitalization)
  Sender: FDA-Public Use
  Company Number: GB-ABBOTT-06P-167-0323532-00

PATIENT
  Age: 15 Year
  Sex: Female

DRUGS (2)
  1. VALPROATE SODIUM [Suspect]
     Indication: SUICIDE ATTEMPT
     Dosage: 24-28 GRAMS
     Route: 048
  2. VALPROATE SODIUM [Suspect]
     Indication: EPILEPSY

REACTIONS (7)
  - ANTICONVULSANT DRUG LEVEL INCREASED [None]
  - BRAIN DAMAGE [None]
  - COMA [None]
  - DRUG LEVEL INCREASED [None]
  - HYPOGLYCAEMIA [None]
  - INTENTIONAL DRUG MISUSE [None]
  - OVERDOSE [None]
